FAERS Safety Report 17822677 (Version 4)
Quarter: 2020Q4

REPORT INFORMATION
  Report Type: Spontaneous
  Country: JP (occurrence: JP)
  Receive Date: 20200526
  Receipt Date: 20201001
  Transmission Date: 20210113
  Serious: No
  Sender: FDA-Public Use
  Company Number: JP-ASTRAZENECA-2020SE66982

PATIENT
  Age: 689 Month
  Sex: Female
  Weight: 48 kg

DRUGS (7)
  1. PREDONINE [Concomitant]
     Active Substance: PREDNISOLONE
     Dosage: NUMBER OF SEPARATE DOSAGES UNKNOWN, 15 MG
     Route: 048
  2. HIRUDOID [Concomitant]
     Active Substance: GLYCOSAMINOGLYCANS
     Indication: DERMATOMYOSITIS
     Dosage: SMALL DOSE, THREE TIMES A DAY
     Route: 062
     Dates: start: 20200123
  3. CHOREITO [Concomitant]
     Indication: LYMPHOEDEMA
     Route: 048
     Dates: start: 20191126
  4. LYNPARZA [Suspect]
     Active Substance: OLAPARIB
     Indication: OVARIAN CANCER
     Route: 048
     Dates: start: 20191015, end: 20191125
  5. DEXALTIN [Concomitant]
     Active Substance: DEXAMETHASONE
     Indication: STOMATITIS
     Dosage: SMALL DOSE, TWO TIMES A DAY
     Route: 062
     Dates: start: 20200109, end: 20200319
  6. LYNPARZA [Suspect]
     Active Substance: OLAPARIB
     Indication: OVARIAN CANCER
     Route: 048
     Dates: start: 20191126, end: 20200220
  7. LAC-B [Concomitant]
     Active Substance: BIFIDOBACTERIUM SPP.
     Indication: GASTROINTESTINAL DISORDER
     Route: 048
     Dates: start: 20191126, end: 202002

REACTIONS (1)
  - Lung disorder [Recovered/Resolved]

NARRATIVE: CASE EVENT DATE: 202002
